FAERS Safety Report 6143220-0 (Version None)
Quarter: 2009Q2

REPORT INFORMATION
  Report Type: 
  Country: None (occurrence: None)
  Receive Date: 20090403
  Receipt Date: 20090327
  Transmission Date: 20091009
  Serious: Yes (Hospitalization)
  Sender: FDA-Public Use
  Company Number: ZA-BRISTOL-MYERS SQUIBB COMPANY-14547186

PATIENT
  Age: 33 Year
  Sex: Male

DRUGS (4)
  1. ABATACEPT [Suspect]
     Indication: COLITIS ULCERATIVE
     Dosage: NO. OF COURSES-16
     Route: 042
     Dates: start: 20070702
  2. ASACOL [Concomitant]
     Dates: start: 20080310
  3. AZAPRESS [Concomitant]
     Dates: start: 20081021
  4. PREDNISONE [Concomitant]
     Dates: start: 20080913

REACTIONS (2)
  - COLITIS ULCERATIVE [None]
  - VIRAEMIA [None]
